FAERS Safety Report 13156606 (Version 2)
Quarter: 2017Q1

REPORT INFORMATION
  Report Type: Spontaneous
  Country: US (occurrence: US)
  Receive Date: 20170126
  Receipt Date: 20170203
  Transmission Date: 20170428
  Serious: No
  Sender: FDA-Public Use
  Company Number: US-ACTELION-A-US2017-148962

PATIENT
  Age: 39 Year
  Sex: Male

DRUGS (3)
  1. CLOBETASOL [Concomitant]
     Active Substance: CLOBETASOL
  2. VALCHLOR [Suspect]
     Active Substance: MECHLORETHAMINE
     Indication: MYCOSIS FUNGOIDES
     Dosage: UNK, QD
     Route: 061
     Dates: start: 20170111
  3. ZINC. [Concomitant]
     Active Substance: ZINC

REACTIONS (3)
  - Pruritus [Unknown]
  - Swelling [Unknown]
  - Blister [Unknown]

NARRATIVE: CASE EVENT DATE: 20170123
